FAERS Safety Report 10239354 (Version 1)
Quarter: 2014Q2

REPORT INFORMATION
  Report Type: Spontaneous
  Country: US (occurrence: US)
  Receive Date: 20140616
  Receipt Date: 20140616
  Transmission Date: 20141212
  Serious: Yes (Death)
  Sender: FDA-Public Use
  Company Number: US-BAYER-2014-088804

PATIENT
  Sex: Male

DRUGS (2)
  1. XOFIGO [Suspect]
     Indication: PROSTATE CANCER
     Dosage: UNK
     Dates: start: 201405
  2. XOFIGO [Suspect]
     Indication: METASTASES TO BONE

REACTIONS (2)
  - Renal failure [Fatal]
  - Nausea [None]
